FAERS Safety Report 25044751 (Version 1)
Quarter: 2025Q1

REPORT INFORMATION
  Report Type: Spontaneous
  Country: NL (occurrence: NL)
  Receive Date: 20250306
  Receipt Date: 20250306
  Transmission Date: 20250409
  Serious: Yes (Death)
  Sender: BOEHRINGER INGELHEIM
  Company Number: None

PATIENT
  Age: 69 Year
  Sex: Female
  Weight: 70 kg

DRUGS (2)
  1. JARDIANCE [Suspect]
     Active Substance: EMPAGLIFLOZIN
     Indication: Disease risk factor
     Dosage: 1 DD 1
     Dates: start: 20230801
  2. PERINDOPRIL ERBUMINE [Suspect]
     Active Substance: PERINDOPRIL ERBUMINE
     Indication: Product used for unknown indication
     Dosage: 1 DD 1
     Dates: start: 20250120

REACTIONS (2)
  - Abdominal discomfort [Fatal]
  - Pancreatitis [Fatal]

NARRATIVE: CASE EVENT DATE: 20250101
